FAERS Safety Report 9307933 (Version 2)
Quarter: 2013Q3

REPORT INFORMATION
  Report Type: Spontaneous
  Country: US (occurrence: US)
  Receive Date: 20130524
  Receipt Date: 20130703
  Transmission Date: 20140515
  Serious: Yes (Other)
  Sender: FDA-Public Use
  Company Number: US-SANOFI-AVENTIS-2013SA039528

PATIENT
  Age: 70 Year
  Sex: Female

DRUGS (1)
  1. AUBAGIO [Suspect]
     Indication: MULTIPLE SCLEROSIS
     Dosage: FRQUENCY:QAM
     Route: 048
     Dates: start: 20130331, end: 20130616

REACTIONS (13)
  - Multiple sclerosis relapse [Unknown]
  - Pain in extremity [Unknown]
  - Muscle spasms [Unknown]
  - Muscle rigidity [Unknown]
  - Back pain [Unknown]
  - Gait disturbance [Unknown]
  - Feeling abnormal [Unknown]
  - Abdominal pain [Unknown]
  - Balance disorder [Unknown]
  - Dyskinesia [Not Recovered/Not Resolved]
  - Constipation [Recovered/Resolved]
  - Faeces discoloured [Not Recovered/Not Resolved]
  - Nail discolouration [Unknown]
